FAERS Safety Report 4510699-7 (Version None)
Quarter: 2004Q4

REPORT INFORMATION
  Report Type: 
  Country: None (occurrence: None)
  Receive Date: 20041025
  Receipt Date: 20040212
  Transmission Date: 20050328
  Serious: Yes (Death, Hospitalization)
  Sender: FDA-Public Use
  Company Number: US-JNJFOC-20040203375

PATIENT
  Age: 82 Year
  Sex: Male

DRUGS (9)
  1. REMICADE [Suspect]
     Indication: RHEUMATOID ARTHRITIS
     Dosage: 3 MG/KG, INTRAVENOUS
     Route: 042
     Dates: start: 20021108, end: 20021108
  2. REMICADE [Suspect]
     Indication: RHEUMATOID ARTHRITIS
     Dosage: 3 MG/KG, INTRAVENOUS
     Route: 042
     Dates: start: 20021216, end: 20021216
  3. FOLIC ACID [Concomitant]
  4. PLAVIX [Concomitant]
  5. PEPCID [Concomitant]
  6. NEURONTIN [Concomitant]
  7. HYDROCHLOROTHIAZIDE [Concomitant]
  8. METHOTREXATE [Concomitant]
  9. PREDNISONE [Concomitant]

REACTIONS (2)
  - DRUG INEFFECTIVE [None]
  - PNEUMOCYSTIS CARINII PNEUMONIA [None]
